FAERS Safety Report 7470337-0 (Version None)
Quarter: 2011Q2

REPORT INFORMATION
  Report Type: 
  Country: None (occurrence: None)
  Receive Date: 20110510
  Receipt Date: 20110412
  Transmission Date: 20111010
  Serious: No
  Sender: FDA-Public Use
  Company Number: US-BAYER-2011-033329

PATIENT
  Age: 34 Year
  Sex: Female
  Weight: 44 kg

DRUGS (2)
  1. MULTI-VITAMIN [Concomitant]
  2. ALEVE (CAPLET) [Suspect]
     Indication: DYSMENORRHOEA
     Dosage: 1 DF, ONCE
     Route: 048
     Dates: start: 20110411

REACTIONS (1)
  - NAUSEA [None]
